FAERS Safety Report 7361952-3 (Version None)
Quarter: 2011Q1

REPORT INFORMATION
  Report Type: 
  Country: None (occurrence: None)
  Receive Date: 20110318
  Receipt Date: 20110308
  Transmission Date: 20110831
  Serious: Yes (Disabling)
  Sender: FDA-Public Use
  Company Number: GXKR2009DK08818

PATIENT
  Sex: Female

DRUGS (3)
  1. RIFAMPICIN [Suspect]
     Indication: MYCOBACTERIUM AVIUM COMPLEX INFECTION
     Dosage: 600 MG, QD
     Route: 048
     Dates: start: 20081111, end: 20090602
  2. KLACID [Concomitant]
     Indication: MYCOBACTERIUM AVIUM COMPLEX INFECTION
     Dosage: 500 MG, UNK
     Dates: start: 20081111, end: 20090429
  3. MYAMBUTOL [Suspect]
     Indication: TUBERCULOSIS
     Dates: start: 20081119, end: 20090101

REACTIONS (8)
  - OPTIC NEURITIS [None]
  - MUSCLE CONTRACTURE [None]
  - HYPOAESTHESIA [None]
  - PERIPHERAL COLDNESS [None]
  - EYE DISORDER [None]
  - THROMBOSIS [None]
  - MUSCLE SPASMS [None]
  - BLINDNESS [None]
